FAERS Safety Report 10071516 (Version 1)
Quarter: 2014Q2

REPORT INFORMATION
  Report Type: Spontaneous
  Country: FR (occurrence: FR)
  Receive Date: 20140410
  Receipt Date: 20140410
  Transmission Date: 20141212
  Serious: Yes (Hospitalization)
  Sender: FDA-Public Use
  Company Number: FR-PFIZER INC-2014096174

PATIENT
  Age: 93 Year
  Sex: Female

DRUGS (8)
  1. SOLU-MEDROL [Suspect]
     Indication: BRONCHITIS
     Dosage: 80 MG, DAILY
     Route: 030
     Dates: start: 20140221, end: 20140225
  2. ROCEPHINE [Interacting]
     Indication: BRONCHITIS
     Dosage: 1 G, DAILY
     Route: 030
     Dates: start: 20140218, end: 20140225
  3. TAVANIC [Interacting]
     Indication: BRONCHITIS
     Dosage: 500 MG, DAILY
     Route: 048
     Dates: start: 20140221, end: 20140225
  4. PREVISCAN [Interacting]
     Dosage: 10 MG, 1X/DAY
     Route: 048
     Dates: end: 20140222
  5. VOGALENE [Concomitant]
  6. LEVOTHYROX [Concomitant]
     Indication: HYPOTHYROIDISM
     Dosage: 62.5 UG, UNK
     Route: 048
  7. ENALAPRIL MALEATE [Concomitant]
     Dosage: 5 MG, UNK
     Route: 048
  8. FUROSEMIDE [Concomitant]
     Dosage: 20 MG, DAILY
     Route: 048

REACTIONS (6)
  - Drug interaction [Recovering/Resolving]
  - Overdose [Recovered/Resolved]
  - Melaena [Recovered/Resolved]
  - Anaemia [Recovered/Resolved]
  - International normalised ratio increased [Recovered/Resolved]
  - Haematoma [Recovering/Resolving]
